FAERS Safety Report 8178407 (Version 4)
Quarter: 2013Q2

REPORT INFORMATION
  Report Type: Report from Study
  Country: DE (occurrence: DE)
  Receive Date: 20111013
  Receipt Date: 20130417
  Transmission Date: 20140414
  Serious: Yes (Death, Hospitalization)
  Sender: FDA-Public Use
  Company Number: DE-BRISTOL-MYERS SQUIBB COMPANY-16085920

PATIENT
  Age: 58 Year
  Sex: Male
  Weight: 66 kg

DRUGS (4)
  1. CETUXIMAB [Suspect]
     Indication: HEAD AND NECK CANCER
     Dosage: 1DF= CYC 2, 24JUN11-8JUL11(14D), CYC 3, 15JUL11-5AUG11(21D), CYC 4, 12AUG11-26AUG11(14D)
     Dates: start: 20110603, end: 20110826
  2. CISPLATIN [Suspect]
     Indication: HEAD AND NECK CANCER
     Dates: start: 20110819, end: 20110928
  3. DOCETAXEL [Suspect]
     Indication: HEAD AND NECK CANCER
     Dates: start: 20110819, end: 20110928
  4. 5-FLUOROURACIL [Suspect]
     Indication: HEAD AND NECK CANCER
     Dates: start: 20110819, end: 20110928

REACTIONS (2)
  - Malignant neoplasm progression [Fatal]
  - Hypokalaemia [Fatal]
